FAERS Safety Report 7946002-X (Version None)
Quarter: 2011Q4

REPORT INFORMATION
  Report Type: 
  Country: None (occurrence: None)
  Receive Date: 20111129
  Receipt Date: 20111122
  Transmission Date: 20120403
  Serious: Yes (Hospitalization)
  Sender: FDA-Public Use
  Company Number: US-GLAXOSMITHKLINE-A0688555A

PATIENT
  Age: 36 Year
  Sex: Female
  Weight: 70.5 kg

DRUGS (2)
  1. AVANDAMET [Suspect]
     Indication: TYPE 2 DIABETES MELLITUS
     Route: 048
     Dates: start: 20030201, end: 20030101
  2. AVANDIA [Suspect]
     Indication: TYPE 2 DIABETES MELLITUS
     Dosage: 8MG PER DAY
     Route: 048
     Dates: start: 20000301, end: 20070501

REACTIONS (5)
  - MYOCARDIAL INFARCTION [None]
  - PAIN [None]
  - ANXIETY [None]
  - CARDIAC DISORDER [None]
  - INJURY [None]
